FAERS Safety Report 10384106 (Version 3)
Quarter: 2016Q4

REPORT INFORMATION
  Report Type: Report from Study
  Country: BR (occurrence: BR)
  Receive Date: 20140814
  Receipt Date: 20161219
  Transmission Date: 20170206
  Serious: Yes (Other)
  Sender: FDA-Public Use
  Company Number: PHHY2014BR097411

PATIENT
  Age: 23 Year
  Sex: Female
  Weight: 65 kg

DRUGS (7)
  1. GILENYA [Suspect]
     Active Substance: FINGOLIMOD HYDROCHLORIDE
     Indication: MULTIPLE SCLEROSIS
     Dosage: 0.5 MG, QD
     Route: 048
     Dates: start: 20130710
  2. GILENYA [Suspect]
     Active Substance: FINGOLIMOD HYDROCHLORIDE
     Dosage: 1 DF, QD
     Route: 048
     Dates: start: 201311
  3. N-ACETYLCYSTEINE [Concomitant]
     Active Substance: ACETYLCYSTEINE
     Indication: HYPERSENSITIVITY
  4. VITAMIN C [Concomitant]
     Active Substance: ASCORBIC ACID
     Indication: RHINORRHOEA
     Dosage: 2 DF, QD 2 OR 3 TABS DAILY
     Route: 065
  5. VITAMIN C [Concomitant]
     Active Substance: ASCORBIC ACID
     Indication: DYSPNOEA
  6. GILENYA [Suspect]
     Active Substance: FINGOLIMOD HYDROCHLORIDE
     Dosage: 0.5 MG, QOD
     Route: 048
  7. N-ACETYLCYSTEINE [Concomitant]
     Active Substance: ACETYLCYSTEINE
     Indication: DYSPNOEA
     Dosage: 2 DF, DAILY
     Route: 065
     Dates: start: 201311

REACTIONS (33)
  - Blindness transient [Unknown]
  - Gait disturbance [Recovering/Resolving]
  - Headache [Not Recovered/Not Resolved]
  - Syncope [Recovered/Resolved]
  - Strabismus [Not Recovered/Not Resolved]
  - Anxiety [Unknown]
  - Prescribed underdose [Unknown]
  - Mobility decreased [Unknown]
  - Wound [Unknown]
  - Mobility decreased [Recovered/Resolved]
  - Insomnia [Not Recovered/Not Resolved]
  - Hair growth abnormal [Unknown]
  - Ingrown hair [Unknown]
  - Immunodeficiency [Not Recovered/Not Resolved]
  - Premenstrual syndrome [Not Recovered/Not Resolved]
  - Dysuria [Recovered/Resolved]
  - Nervousness [Unknown]
  - Back pain [Recovered/Resolved]
  - Acne [Not Recovered/Not Resolved]
  - Hypotension [Recovered/Resolved]
  - Poliomyelitis [Unknown]
  - Multiple sclerosis relapse [Not Recovered/Not Resolved]
  - Muscle strain [Unknown]
  - Urinary tract infection [Recovered/Resolved]
  - Visual acuity reduced [Not Recovered/Not Resolved]
  - Tremor [Recovering/Resolving]
  - Impaired reasoning [Unknown]
  - Spinal pain [Not Recovered/Not Resolved]
  - Pain in extremity [Not Recovered/Not Resolved]
  - Gait disturbance [Recovered/Resolved]
  - Polymenorrhoea [Unknown]
  - Pain [Not Recovered/Not Resolved]
  - Back pain [Not Recovered/Not Resolved]

NARRATIVE: CASE EVENT DATE: 20140731
